FAERS Safety Report 20532146 (Version 1)
Quarter: 2022Q1

REPORT INFORMATION
  Report Type: Report from Study
  Country: US (occurrence: None)
  Receive Date: 20220301
  Receipt Date: 20220301
  Transmission Date: 20220423
  Serious: Yes (Other)
  Sender: FDA-Public Use
  Company Number: 2022A086154

PATIENT

DRUGS (1)
  1. DALIRESP [Suspect]
     Active Substance: ROFLUMILAST
     Route: 048

REACTIONS (5)
  - Lung neoplasm malignant [Unknown]
  - Throat cancer [Unknown]
  - Laryngeal neoplasm [Unknown]
  - Bone cancer [Unknown]
  - Pneumonia [Recovering/Resolving]
